FAERS Safety Report 5518176-1 (Version None)
Quarter: 2007Q4

REPORT INFORMATION
  Report Type: 
  Country: None (occurrence: None)
  Receive Date: 20071115
  Receipt Date: 20071105
  Transmission Date: 20080405
  Serious: Yes (Hospitalization)
  Sender: FDA-Public Use
  Company Number: JP-AMGEN-US207116

PATIENT
  Sex: Female
  Weight: 50 kg

DRUGS (7)
  1. ENBREL [Suspect]
     Indication: RHEUMATOID ARTHRITIS
     Route: 058
     Dates: start: 20060527, end: 20060617
  2. ISCOTIN [Concomitant]
     Indication: PROPHYLAXIS
     Route: 048
     Dates: start: 20060527, end: 20060617
  3. PYDOXAL [Concomitant]
     Indication: PROPHYLAXIS
     Route: 048
     Dates: start: 20060527, end: 20060617
  4. PREDONINE [Concomitant]
     Indication: ARTHRITIS
     Route: 048
  5. MUCOSTA [Concomitant]
     Indication: PROPHYLAXIS
     Route: 048
  6. METHOTREXATE [Concomitant]
     Indication: RHEUMATOID ARTHRITIS
     Route: 048
  7. ALFAROL [Concomitant]
     Indication: OSTEOPOROSIS
     Route: 048

REACTIONS (1)
  - HAEMATOCHEZIA [None]
